FAERS Safety Report 23481884 (Version 1)
Quarter: 2024Q1

REPORT INFORMATION
  Report Type: Other
  Country: IT (occurrence: None)
  Receive Date: 20240205
  Receipt Date: 20240205
  Transmission Date: 20240410
  Serious: Yes (Death, Other)
  Sender: FDA-Public Use
  Company Number: IT-ROCHE-3501813

PATIENT

DRUGS (24)
  1. RITUXIMAB [Suspect]
     Active Substance: RITUXIMAB
     Indication: Follicular lymphoma refractory
     Route: 042
  2. RITUXIMAB [Suspect]
     Active Substance: RITUXIMAB
     Route: 042
  3. RITUXIMAB [Suspect]
     Active Substance: RITUXIMAB
     Dosage: MAINTENANCE THERAPY
     Route: 042
  4. RITUXIMAB [Suspect]
     Active Substance: RITUXIMAB
     Indication: Follicular lymphoma refractory
     Dosage: MAINTENANCE THERAPY
     Route: 058
  5. DOXORUBICIN [Suspect]
     Active Substance: DOXORUBICIN
     Indication: Follicular lymphoma refractory
     Route: 065
  6. VINCRISTINE [Suspect]
     Active Substance: VINCRISTINE
     Indication: Follicular lymphoma refractory
     Route: 065
  7. CYCLOPHOSPHAMIDE [Suspect]
     Active Substance: CYCLOPHOSPHAMIDE
     Indication: Follicular lymphoma refractory
     Route: 042
  8. PREDNISONE [Suspect]
     Active Substance: PREDNISONE
     Indication: Follicular lymphoma refractory
     Route: 048
  9. CISPLATIN [Suspect]
     Active Substance: CISPLATIN
     Indication: Follicular lymphoma refractory
     Route: 065
  10. CYTARABINE [Suspect]
     Active Substance: CYTARABINE
     Indication: Follicular lymphoma refractory
     Route: 065
  11. MITOXANTRONE [Suspect]
     Active Substance: MITOXANTRONE HYDROCHLORIDE
     Indication: Follicular lymphoma refractory
     Route: 065
  12. FLUDARABINE [Suspect]
     Active Substance: FLUDARABINE PHOSPHATE
     Indication: Follicular lymphoma refractory
     Route: 065
  13. IFOSFAMIDE [Suspect]
     Active Substance: IFOSFAMIDE
     Indication: Follicular lymphoma refractory
     Route: 065
  14. IFOSFAMIDE [Suspect]
     Active Substance: IFOSFAMIDE
     Route: 065
  15. IFOSFAMIDE [Suspect]
     Active Substance: IFOSFAMIDE
     Route: 065
  16. ETOPOSIDE [Suspect]
     Active Substance: ETOPOSIDE
     Indication: Follicular lymphoma refractory
     Route: 065
  17. ETOPOSIDE [Suspect]
     Active Substance: ETOPOSIDE
     Route: 065
  18. CARBOPLATIN [Suspect]
     Active Substance: CARBOPLATIN
     Indication: Follicular lymphoma refractory
     Dosage: AREA UNDER THE CURVE = 5; MAXIMUM DOSE 800 MG
     Route: 065
  19. MESNA [Suspect]
     Active Substance: MESNA
     Indication: Follicular lymphoma refractory
     Route: 065
  20. MESNA [Suspect]
     Active Substance: MESNA
     Route: 065
  21. EPIRUBICIN [Suspect]
     Active Substance: EPIRUBICIN
     Indication: Follicular lymphoma refractory
     Route: 065
  22. BENDAMUSTINE [Suspect]
     Active Substance: BENDAMUSTINE
     Indication: Follicular lymphoma refractory
     Route: 065
  23. PLERIXAFOR [Suspect]
     Active Substance: PLERIXAFOR
     Indication: Follicular lymphoma refractory
     Route: 065
  24. IBRITUMOMAB TIUXETAN [Suspect]
     Active Substance: IBRITUMOMAB TIUXETAN
     Indication: Follicular lymphoma refractory
     Dosage: 0.4 MCI/KG IF PLATELETS }/= 150.000/MMC, 0.3 MCI/KG IF PLATELETS ARE BETWEEN 100.000 AND 150.000/MMC
     Route: 065

REACTIONS (56)
  - Pneumonia [Fatal]
  - COVID-19 [Fatal]
  - Febrile neutropenia [Unknown]
  - Diarrhoea [Unknown]
  - Pyrexia [Unknown]
  - Pain [Unknown]
  - Sepsis [Unknown]
  - Blood bilirubin increased [Unknown]
  - Hepatic failure [Unknown]
  - Pancreatitis [Unknown]
  - Acute kidney injury [Unknown]
  - Ischaemia [Unknown]
  - Palpitations [Unknown]
  - Arrhythmia supraventricular [Unknown]
  - Tinnitus [Unknown]
  - Mucosal infection [Unknown]
  - Device related infection [Unknown]
  - Conjunctivitis [Unknown]
  - Bacterial infection [Unknown]
  - Viral infection [Unknown]
  - Fungal infection [Unknown]
  - Auditory nerve disorder [Unknown]
  - Eye pain [Unknown]
  - Constipation [Unknown]
  - Gastritis [Unknown]
  - Mucosal inflammation [Unknown]
  - Nausea [Unknown]
  - Gastrointestinal pain [Unknown]
  - Vomiting [Unknown]
  - Fatigue [Unknown]
  - Influenza like illness [Unknown]
  - Hypothermia [Unknown]
  - Alanine aminotransferase increased [Unknown]
  - Blood creatinine increased [Unknown]
  - Hyperglycaemia [Unknown]
  - Hyperuricaemia [Unknown]
  - Hypokalaemia [Unknown]
  - Back pain [Unknown]
  - Bone pain [Unknown]
  - Muscular weakness [Unknown]
  - Muscular weakness [Unknown]
  - Myalgia [Unknown]
  - Peripheral motor neuropathy [Unknown]
  - Paraesthesia [Unknown]
  - Peripheral sensory neuropathy [Unknown]
  - Depression [Unknown]
  - Urinary retention [Unknown]
  - Renal colic [Unknown]
  - Cough [Unknown]
  - Laryngeal pain [Unknown]
  - Skin disorder [Unknown]
  - Pruritus [Unknown]
  - Rash [Unknown]
  - Haemorrhage [Unknown]
  - Hypertension [Unknown]
  - Embolism [Unknown]
